FAERS Safety Report 9410815 (Version 2)
Quarter: 2013Q3

REPORT INFORMATION
  Report Type: Spontaneous
  Country: FR (occurrence: FR)
  Receive Date: 20130719
  Receipt Date: 20130725
  Transmission Date: 20140515
  Serious: Yes (Hospitalization)
  Sender: FDA-Public Use
  Company Number: FR-PFIZER INC-2013205733

PATIENT
  Age: 48 Year
  Sex: Female
  Weight: 46 kg

DRUGS (7)
  1. DALACINE [Suspect]
     Indication: NECROSIS
     Dosage: 6 DF, 1X/DAY
     Route: 048
     Dates: start: 20130619, end: 20130701
  2. EUPANTOL [Suspect]
     Indication: PROPHYLAXIS AGAINST GASTROINTESTINAL ULCER
     Dosage: 40 MG, 1X/DAY
     Route: 048
     Dates: start: 20130620, end: 20130630
  3. CALCIPARIN [Suspect]
     Indication: THROMBOSIS PROPHYLAXIS
     Dosage: 0.2 ML, 1X/DAY
     Route: 058
     Dates: start: 20130620, end: 20130701
  4. CRESTOR [Suspect]
     Indication: HYPERCHOLESTEROLAEMIA
     Dosage: 5 MG, 1X/DAY
     Route: 048
     Dates: start: 20130619, end: 20130701
  5. HUMALOG [Concomitant]
     Indication: TYPE 1 DIABETES MELLITUS
     Dosage: UNK
     Route: 058
  6. LANTUS [Concomitant]
     Indication: TYPE 1 DIABETES MELLITUS
     Dosage: UNK
     Route: 058
  7. PERINDOPRIL [Concomitant]
     Dosage: UNK

REACTIONS (1)
  - Cholestasis [Not Recovered/Not Resolved]
